FAERS Safety Report 9500062 (Version 1)
Quarter: 2013Q1

REPORT INFORMATION
  Report Type: Spontaneous
  Country: US (occurrence: None)
  Receive Date: 20130129
  Receipt Date: 20130129
  Transmission Date: 20140127
  Serious: Yes (Other)
  Sender: FDA-Public Use
  Company Number: 1000027643

PATIENT
  Age: 60 Year
  Sex: Female

DRUGS (11)
  1. BYSTOLIC [Suspect]
     Indication: HYPERTENSION
     Dosage: 5 MG (5 MG, 1 IN 1 D)
     Dates: start: 20100920, end: 20101220
  2. BYSTOLIC [Suspect]
     Dosage: 10 MG (10 MG, 1 IN 1 D)
     Dates: start: 20110321
  3. LISINOPRIL WITH HYDROCHLOROTHIAZIDE (LISINOPRIL, HYDROCHLOROTHIAZIDE( LISINOPRIL, HYDROCHLOROTHIAZIDE) [Concomitant]
  4. PROTONIX (PANTOPRAZOLE SODIUM SESQUIHYDRATE) (PANTOPRAZOLE SODIUM SESQUIHYDRATE) [Concomitant]
  5. VICODIN (VICODIN) (VICODIN) [Concomitant]
  6. TOPAMAX (TOPIRAMATE) (TOPIRAMATE) [Concomitant]
  7. BENYL (DICYCLOVERINEHYDROCHLORIDE) (DICYCLOVERINE HYDROCHLORIDE) [Concomitant]
  8. PREMARIN (ESTROGENS CONJUGATED) (ESTROGENS CONJUGATED) [Concomitant]
  9. REMERON (MIRTAZAPINE) (MIRTAZAPINE) [Concomitant]
  10. ALBUTEROL (ALBUTEROL) (ALBUTEROL) [Concomitant]
  11. SPIRIVA (TIOTROPIUM BROMIDE) (TIOTROPIUM BROMIDE) [Concomitant]

REACTIONS (1)
  - Blood pressure increased [None]
